FAERS Safety Report 8019220-2 (Version None)
Quarter: 2012Q1

REPORT INFORMATION
  Report Type: 
  Country: None (occurrence: None)
  Receive Date: 20120103
  Receipt Date: 20111220
  Transmission Date: 20120608
  Serious: Yes (Other)
  Sender: FDA-Public Use
  Company Number: DE-UCBSA-044500

PATIENT
  Sex: Female

DRUGS (9)
  1. METHOTREXATE SODIUM [Concomitant]
     Dates: start: 20100401, end: 20101206
  2. PREDNISOLONE [Concomitant]
     Dates: start: 20101101, end: 20101201
  3. PREDNISOLONE [Concomitant]
     Dates: start: 20101015, end: 20101001
  4. CERTOLIZUMAB PEGOL [Suspect]
     Indication: RHEUMATOID ARTHRITIS
     Dosage: UNKNOWN DOSAGE
     Route: 058
     Dates: end: 20110901
  5. PREDNISOLONE [Concomitant]
     Dates: start: 20101025, end: 20101030
  6. PREDNISOLONE [Concomitant]
     Indication: RHEUMATOID ARTHRITIS
     Dates: start: 20101202
  7. PREDNISOLONE [Concomitant]
     Dates: start: 20100401, end: 20101014
  8. FOLIC ACID [Concomitant]
     Indication: RHEUMATOID ARTHRITIS
     Dates: start: 20100401
  9. METHOTREXATE SODIUM [Concomitant]
     Indication: RHEUMATOID ARTHRITIS
     Dates: start: 20101207

REACTIONS (1)
  - BREAST CANCER IN SITU [None]
